FAERS Safety Report 9491503 (Version 2)
Quarter: 2013Q1

REPORT INFORMATION
  Report Type: Report from Study
  Country: US (occurrence: US)
  Receive Date: 20121219
  Receipt Date: 20121219
  Transmission Date: 20140127
  Serious: Yes (Hospitalization)
  Sender: FDA-Public Use
  Company Number: US-LUNDBECK-DKLU1063345

PATIENT
  Age: 9 None
  Sex: Female
  Weight: 33.11 kg

DRUGS (12)
  1. CLOBAZAM [Suspect]
     Indication: LENNOX-GASTAUT SYNDROME
     Route: 048
     Dates: start: 20080801, end: 20081119
  2. CLOBAZAM [Suspect]
     Route: 048
     Dates: start: 20081120, end: 20090203
  3. CLOBAZAM [Suspect]
     Route: 048
     Dates: start: 20090204, end: 20090209
  4. CLOBAZAM [Suspect]
     Route: 048
     Dates: start: 20090210, end: 20090816
  5. CLOBAZAM [Suspect]
     Route: 048
     Dates: start: 20090817, end: 20100629
  6. CLOBAZAM [Suspect]
     Route: 048
     Dates: start: 20100630, end: 20100706
  7. CLOBAZAM [Suspect]
     Route: 048
     Dates: start: 20100630, end: 20100706
  8. LAMOTRIGINE [Concomitant]
     Indication: EPILEPSY
     Route: 048
     Dates: start: 200511
  9. LEVETIRACETAM [Concomitant]
     Indication: EPILEPSY
     Route: 048
     Dates: start: 20061123
  10. KETOGENIC DIET [Concomitant]
     Indication: EPILEPSY
     Dates: start: 20060504
  11. ONE-A-DAY SCOOBY DOO COMPLETE VITAMIN [Concomitant]
     Indication: VITAMIN SUPPLEMENTATION
     Dosage: 1 TABLET
     Route: 048
     Dates: start: 200605
  12. CALCIUM CARBONATE [Concomitant]
     Indication: VITAMIN SUPPLEMENTATION
     Route: 048
     Dates: start: 200605

REACTIONS (1)
  - Lennox-Gastaut syndrome [Recovered/Resolved]
